FAERS Safety Report 24770021 (Version 1)
Quarter: 2024Q4

REPORT INFORMATION
  Report Type: Spontaneous
  Country: US (occurrence: US)
  Receive Date: 20241224
  Receipt Date: 20241224
  Transmission Date: 20250115
  Serious: No
  Sender: CELLTRION
  Company Number: US-CELLTRION INC.-2024US006609

PATIENT

DRUGS (2)
  1. TRUXIMA [Suspect]
     Active Substance: RITUXIMAB-ABBS
     Indication: Polymyositis
     Dosage: 10 MILLIGRAM PER MILLILITRE
  2. TRUXIMA [Suspect]
     Active Substance: RITUXIMAB-ABBS
     Dosage: 1000MG WEEK 0, WEEK 2 AND EVERY 6 MONTHS AFTER THAT

REACTIONS (3)
  - Product dose omission in error [Not Recovered/Not Resolved]
  - Intercepted product storage error [Not Recovered/Not Resolved]
  - Intentional product use issue [Not Recovered/Not Resolved]
